FAERS Safety Report 18071638 (Version 1)
Quarter: 2020Q3

REPORT INFORMATION
  Report Type: Report from Study
  Country: CA (occurrence: CA)
  Receive Date: 20200727
  Receipt Date: 20200727
  Transmission Date: 20201103
  Serious: Yes (Other)
  Sender: FDA-Public Use
  Company Number: CA-ACCORD-192359

PATIENT
  Age: 59 Year
  Sex: Male

DRUGS (4)
  1. STELARA [Concomitant]
     Active Substance: USTEKINUMAB
     Dosage: DOSAGE FORM: SOLUTION SUBCUTANEOUS
  2. METHOTREXATE. [Suspect]
     Active Substance: METHOTREXATE
     Indication: PRODUCT USED FOR UNKNOWN INDICATION
     Route: 065
  3. COSENTYX [Suspect]
     Active Substance: SECUKINUMAB
     Indication: PSORIASIS
     Route: 058
  4. CALCIPOTRIOL AND BETAMETHASONE [Concomitant]
     Active Substance: BETAMETHASONE\CALCIPOTRIENE
     Route: 065

REACTIONS (2)
  - Blood pressure increased [Unknown]
  - Heart rate increased [Unknown]
